FAERS Safety Report 13178868 (Version 2)
Quarter: 2017Q1

REPORT INFORMATION
  Report Type: Spontaneous
  Country: RU (occurrence: RU)
  Receive Date: 20170202
  Receipt Date: 20170210
  Transmission Date: 20170428
  Serious: Yes (Life-Threatening)
  Sender: FDA-Public Use
  Company Number: RU-ASTRAZENECA-2017SE10162

PATIENT
  Age: 61 Year
  Sex: Male
  Weight: 192 kg

DRUGS (5)
  1. KORIOL [Concomitant]
  2. ROXERA [Concomitant]
  3. BRILINTA [Suspect]
     Active Substance: TICAGRELOR
     Route: 048
     Dates: start: 201606
  4. EXPERA [Concomitant]
  5. CARDIOMAGNYL [Concomitant]
     Active Substance: ASPIRIN\MAGNESIUM HYDROXIDE

REACTIONS (2)
  - Malaise [Unknown]
  - Blood pressure decreased [Recovered/Resolved]
